FAERS Safety Report 14989108 (Version 8)
Quarter: 2019Q2

REPORT INFORMATION
  Report Type: Spontaneous
  Country: CA (occurrence: CA)
  Receive Date: 20180608
  Receipt Date: 20190522
  Transmission Date: 20190711
  Serious: Yes (Hospitalization, Other)
  Sender: FDA-Public Use
  Company Number: CA-CELLTRION INC.-2017CA015916

PATIENT

DRUGS (21)
  1. INFLECTRA [Suspect]
     Active Substance: INFLIXIMAB-DYYB
     Dosage: 680 MG (10 MG/KG), EVERY 6 WEEKS
     Route: 042
     Dates: start: 20190320
  2. METHOTREXATE. [Concomitant]
     Active Substance: METHOTREXATE
     Dosage: UNK
     Route: 065
  3. TRIHEXYPHENIDYL [Concomitant]
     Active Substance: TRIHEXYPHENIDYL
     Dosage: UNK
     Route: 065
  4. INFLECTRA [Suspect]
     Active Substance: INFLIXIMAB-DYYB
     Dosage: 680 MG (10 MG/KG), EVERY 6 WEEKS
     Route: 042
     Dates: start: 20181227
  5. INFLECTRA [Suspect]
     Active Substance: INFLIXIMAB-DYYB
     Dosage: 680 MG (10 MG/KG), EVERY 6 WEEKS
     Route: 042
     Dates: start: 20190207
  6. EZETIMIBE. [Concomitant]
     Active Substance: EZETIMIBE
     Dosage: UNK
     Route: 065
  7. VIT D [Concomitant]
     Active Substance: VITAMIN D NOS
     Dosage: UNK
     Route: 065
  8. APO-SULFATRIM [Concomitant]
     Active Substance: SULFAMETHOXAZOLE\TRIMETHOPRIM
     Dosage: UNK
  9. INFLECTRA [Suspect]
     Active Substance: INFLIXIMAB-DYYB
     Indication: CROHN^S DISEASE
     Dosage: 350 MG (5 MG/KG), AT 0, 2, 6 WEEKS, THEN EVERY 8 WEEKS
     Route: 042
     Dates: start: 20170731, end: 20180104
  10. INFLECTRA [Suspect]
     Active Substance: INFLIXIMAB-DYYB
     Dosage: 680 MG (10 MG/KG), EVERY 6 WEEKS
     Route: 042
     Dates: start: 20180228, end: 20180228
  11. INFLECTRA [Suspect]
     Active Substance: INFLIXIMAB-DYYB
     Dosage: 680 MG (10 MG/KG), EVERY 6 WEEKS
     Route: 042
     Dates: start: 20190207
  12. INFLECTRA [Suspect]
     Active Substance: INFLIXIMAB-DYYB
     Dosage: 680 MG (10 MG/KG), EVERY 6 WEEKS
     Route: 042
     Dates: start: 20190514
  13. FOLIC ACID. [Concomitant]
     Active Substance: FOLIC ACID
     Dosage: UNK
     Route: 065
  14. CALCIUM [Concomitant]
     Active Substance: CALCIUM
     Dosage: UNK
     Route: 065
  15. INFLECTRA [Suspect]
     Active Substance: INFLIXIMAB-DYYB
     Dosage: 680 MG (10 MG/KG), EVERY 6 WEEKS
     Route: 042
     Dates: start: 20180823
  16. INFLECTRA [Suspect]
     Active Substance: INFLIXIMAB-DYYB
     Dosage: 680 MG (10 MG/KG), EVERY 6 WEEKS
     Route: 042
     Dates: start: 20181115
  17. PANTOPRAZOLE [Concomitant]
     Active Substance: PANTOPRAZOLE
     Dosage: UNK
     Route: 065
  18. INFLECTRA [Suspect]
     Active Substance: INFLIXIMAB-DYYB
     Dosage: 680 MG (10 MG/KG), EVERY 6 WEEKS
     Route: 042
     Dates: start: 20180531
  19. INFLECTRA [Suspect]
     Active Substance: INFLIXIMAB-DYYB
     Dosage: 680 MG (10 MG/KG), EVERY 6 WEEKS
     Route: 042
     Dates: start: 20180713
  20. INFLECTRA [Suspect]
     Active Substance: INFLIXIMAB-DYYB
     Dosage: 680 MG (10 MG/KG), EVERY 6 WEEKS
     Route: 042
     Dates: start: 20181004
  21. INFLECTRA [Suspect]
     Active Substance: INFLIXIMAB-DYYB
     Dosage: 680 MG (10 MG/KG), EVERY 6 WEEKS
     Route: 042
     Dates: start: 20180419

REACTIONS (13)
  - Blood pressure fluctuation [Unknown]
  - Condition aggravated [Recovering/Resolving]
  - Pain [Unknown]
  - Weight decreased [Unknown]
  - Inappropriate schedule of product administration [Unknown]
  - Orchitis [Recovered/Resolved]
  - Testicle adenoma [Unknown]
  - Scrotal inflammation [Unknown]
  - Intestinal obstruction [Unknown]
  - Off label use [Unknown]
  - Product use issue [Unknown]
  - Constipation [Recovering/Resolving]
  - Hydrocele [Unknown]

NARRATIVE: CASE EVENT DATE: 20171109
